FAERS Safety Report 7794417-5 (Version None)
Quarter: 2011Q4

REPORT INFORMATION
  Report Type: 
  Country: None (occurrence: None)
  Receive Date: 20111004
  Receipt Date: 20111004
  Transmission Date: 20120403
  Serious: Yes (Other)
  Sender: FDA-Public Use
  Company Number: None

PATIENT
  Age: 49 Year
  Sex: Female
  Weight: 62.142 kg

DRUGS (1)
  1. FLAGYL [Suspect]
     Indication: GENITAL INFECTION FEMALE
     Dosage: 500 MG
     Route: 048
     Dates: start: 20110823, end: 20110827

REACTIONS (2)
  - MUSCLE SPASMS [None]
  - PYREXIA [None]
